FAERS Safety Report 8463062-0 (Version None)
Quarter: 2012Q2

REPORT INFORMATION
  Report Type: 
  Country: None (occurrence: None)
  Receive Date: 20120625
  Receipt Date: 20120620
  Transmission Date: 20120825
  Serious: Yes (Hospitalization)
  Sender: FDA-Public Use
  Company Number: GR-PFIZER INC-2012147943

PATIENT
  Age: 75 Year
  Sex: Male

DRUGS (1)
  1. TORISEL [Suspect]
     Indication: MANTLE CELL LYMPHOMA
     Dosage: 175 MG WEEKLY FOR 3 WEEKS AND THEN 75 MG WEEKLY
     Dates: start: 20111101, end: 20120601

REACTIONS (2)
  - RETINAL INJURY [None]
  - CONJUNCTIVITIS [None]
